FAERS Safety Report 20862890 (Version 2)
Quarter: 2023Q2

REPORT INFORMATION
  Report Type: Spontaneous
  Country: US (occurrence: US)
  Receive Date: 20220523
  Receipt Date: 20230531
  Transmission Date: 20230721
  Serious: No
  Sender: FDA-Public Use
  Company Number: US-PFIZER INC-202101884041

PATIENT
  Age: 81 Year
  Sex: Male

DRUGS (2)
  1. VYNDAMAX [Suspect]
     Active Substance: TAFAMIDIS
     Indication: Amyloidosis senile
     Dosage: 61 MG, DAILY
  2. VYNDAMAX [Suspect]
     Active Substance: TAFAMIDIS
     Indication: Cardiac amyloidosis
     Dosage: 61 MG, 1X/DAY
     Route: 048

REACTIONS (9)
  - Dyspnoea exertional [Not Recovered/Not Resolved]
  - Chest pain [Recovering/Resolving]
  - Abdominal distension [Unknown]
  - Fluid retention [Unknown]
  - Oedema peripheral [Recovering/Resolving]
  - Orthopnoea [Unknown]
  - Dizziness [Unknown]
  - Visual impairment [Unknown]
  - Product dose omission issue [Unknown]

NARRATIVE: CASE EVENT DATE: 20230501
